FAERS Safety Report 23100935 (Version 1)
Quarter: 2023Q4

REPORT INFORMATION
  Report Type: Spontaneous
  Country: US (occurrence: None)
  Receive Date: 20231021
  Receipt Date: 20231021
  Transmission Date: 20240110
  Serious: Yes (Hospitalization)
  Sender: FDA-Public Use
  Company Number: None

PATIENT
  Age: 70 Year
  Sex: Male
  Weight: 88 kg

DRUGS (2)
  1. NOVOLIN N [Suspect]
     Active Substance: INSULIN HUMAN
     Dosage: OTHER STRENGTH : 100U/ML;?
     Dates: start: 20090731
  2. NOVOLOG [Suspect]
     Active Substance: INSULIN ASPART
     Dosage: OTHER STRENGTH : 100U/ML;?
     Dates: start: 20130802

REACTIONS (4)
  - Hypoglycaemia [None]
  - Syncope [None]
  - Inappropriate schedule of product administration [None]
  - Drug monitoring procedure incorrectly performed [None]

NARRATIVE: CASE EVENT DATE: 20230321
